FAERS Safety Report 9727803 (Version 1)
Quarter: 2013Q4

REPORT INFORMATION
  Report Type: Spontaneous
  Country: US (occurrence: US)
  Receive Date: 20131204
  Receipt Date: 20131204
  Transmission Date: 20140711
  Serious: Yes (Other)
  Sender: FDA-Public Use
  Company Number: US-AMGEN-USASP2013084836

PATIENT
  Age: 46 Year
  Sex: Male

DRUGS (1)
  1. ENBREL [Suspect]
     Indication: PSORIASIS
     Dosage: UNK UNK, QWK
     Route: 065
     Dates: start: 2008, end: 2009

REACTIONS (5)
  - Local swelling [Recovered/Resolved]
  - Wound infection staphylococcal [Recovered/Resolved]
  - Gastrointestinal infection [Recovered/Resolved]
  - Laceration [Recovered/Resolved]
  - Psoriasis [Not Recovered/Not Resolved]
